FAERS Safety Report 21146707 (Version 1)
Quarter: 2022Q3

REPORT INFORMATION
  Report Type: Other
  Country: US (occurrence: None)
  Receive Date: 20220729
  Receipt Date: 20220729
  Transmission Date: 20221027
  Serious: Yes (Other)
  Sender: FDA-Public Use
  Company Number: US-ROCHE-3148403

PATIENT
  Sex: Female

DRUGS (4)
  1. RITUXIMAB [Suspect]
     Active Substance: RITUXIMAB
     Indication: Chronic lymphocytic leukaemia
     Route: 065
  2. CYCLOPHOSPHAMIDE [Suspect]
     Active Substance: CYCLOPHOSPHAMIDE
     Indication: Chronic lymphocytic leukaemia
     Route: 065
  3. FLUDARABINE [Suspect]
     Active Substance: FLUDARABINE PHOSPHATE
     Indication: Chronic lymphocytic leukaemia
     Route: 065
  4. PREDNISONE [Suspect]
     Active Substance: PREDNISONE
     Indication: Chronic lymphocytic leukaemia
     Route: 065

REACTIONS (1)
  - Hypoxia [Recovered/Resolved]
